FAERS Safety Report 5097015-X (Version None)
Quarter: 2006Q3

REPORT INFORMATION
  Report Type: 
  Country: None (occurrence: None)
  Receive Date: 20060824
  Receipt Date: 20060808
  Transmission Date: 20061208
  Serious: Yes (Other)
  Sender: FDA-Public Use
  Company Number: CHPA2006US08022

PATIENT
  Age: 53 Year
  Sex: Male
  Weight: 84.8 kg

DRUGS (4)
  1. NICOTINE [Suspect]
     Indication: SMOKING CESSATION THERAPY
     Dosage: 21 MG, QD, TRANSDERMAL
     Route: 062
     Dates: start: 20060806, end: 20060807
  2. LIPITOR /NET/ (ATORVASTATIN CALCIUM) [Concomitant]
  3. TOPROL-XL [Concomitant]
  4. PLAVIX [Concomitant]

REACTIONS (3)
  - RASH ERYTHEMATOUS [None]
  - RASH MACULAR [None]
  - RASH PRURITIC [None]
